FAERS Safety Report 5644104-4 (Version None)
Quarter: 2008Q1

REPORT INFORMATION
  Report Type: 
  Country: None (occurrence: None)
  Receive Date: 20080226
  Receipt Date: 20080215
  Transmission Date: 20080703
  Serious: Yes (Hospitalization)
  Sender: FDA-Public Use
  Company Number: B0508535A

PATIENT
  Age: 61 Year
  Sex: Female
  Weight: 76.8393 kg

DRUGS (9)
  1. VALTREX [Suspect]
     Dosage: 500 MG/TWICE PER DAY/ORAL
     Route: 048
     Dates: start: 20071227, end: 20080109
  2. IRBESARTAN [Suspect]
     Dosage: 150 MG/PER DAY/ORAL
     Route: 048
     Dates: end: 20080109
  3. HYDROCHLOROTHIAZIDE [Suspect]
     Dosage: 12.5 MG/PER DAY/ORAL
     Route: 048
     Dates: start: 20071227, end: 20080109
  4. AZATHIOPRINE [Concomitant]
  5. CO-TRIMOXAZOLE [Concomitant]
  6. PREDNISONE [Concomitant]
  7. ALENDRONATE SODIUM [Concomitant]
  8. CACIT VIT D3 [Concomitant]
  9. CYCLOPHOSPHAMIDE [Concomitant]

REACTIONS (2)
  - CONDITION AGGRAVATED [None]
  - RENAL FAILURE [None]
